FAERS Safety Report 25130882 (Version 1)
Quarter: 2025Q1

REPORT INFORMATION
  Report Type: Report from Study
  Country: EG (occurrence: EG)
  Receive Date: 20250327
  Receipt Date: 20250327
  Transmission Date: 20250409
  Serious: Yes (Hospitalization)
  Sender: BIOGEN
  Company Number: EG-BIOGEN-2025BI01303186

PATIENT
  Sex: Female
  Weight: 68 kg

DRUGS (3)
  1. TYSABRI [Suspect]
     Active Substance: NATALIZUMAB
     Indication: Multiple sclerosis
     Route: 050
     Dates: start: 202303
  2. IRON [Suspect]
     Active Substance: IRON
     Indication: Anaemia
     Route: 050
     Dates: start: 2022, end: 2023
  3. IRON [Suspect]
     Active Substance: IRON
     Route: 050

REACTIONS (2)
  - Lymphoma [Recovered/Resolved]
  - Drug hypersensitivity [Unknown]

NARRATIVE: CASE EVENT DATE: 20230101
